FAERS Safety Report 5848751-6 (Version None)
Quarter: 2008Q3

REPORT INFORMATION
  Report Type: 
  Country: None (occurrence: None)
  Receive Date: 20080814
  Receipt Date: 20080802
  Transmission Date: 20090109
  Serious: Yes (Hospitalization)
  Sender: FDA-Public Use
  Company Number: 200808001

PATIENT
  Age: 46 Year
  Sex: Male
  Weight: 90.7194 kg

DRUGS (6)
  1. TESTIM [Suspect]
     Indication: BLOOD TESTOSTERONE DECREASED
     Dosage: 50 MG DAILY TRANSDERMAL
     Route: 062
     Dates: start: 20060101
  2. PROSCAR [Concomitant]
  3. PROTONIX [Concomitant]
  4. ZEITA (EZETIMIBE) [Concomitant]
  5. LAMICTAL [Concomitant]
  6. RISTERBAL [Concomitant]

REACTIONS (1)
  - DIABETES MELLITUS [None]
